FAERS Safety Report 9468000 (Version 2)
Quarter: 2013Q3

REPORT INFORMATION
  Report Type: Spontaneous
  Country: US (occurrence: US)
  Receive Date: 20130821
  Receipt Date: 20130911
  Transmission Date: 20140515
  Serious: Yes (Death)
  Sender: FDA-Public Use
  Company Number: US-BAYER-2013-098930

PATIENT
  Age: 56 Year
  Sex: Male
  Weight: 112 kg

DRUGS (2)
  1. MAGNEVIST [Suspect]
     Indication: NUCLEAR MAGNETIC RESONANCE IMAGING
     Dosage: 5 ML, ONCE
     Dates: start: 20080618, end: 20080618
  2. MAGNEVIST [Suspect]
     Indication: NEUROLOGICAL SYMPTOM

REACTIONS (9)
  - Arteriosclerosis coronary artery [Fatal]
  - Dyspnoea [Fatal]
  - Circulatory collapse [Fatal]
  - Cardiac arrest [Fatal]
  - Nausea [Fatal]
  - Chest discomfort [Fatal]
  - Feeling abnormal [Fatal]
  - Injection site warmth [None]
  - Hypertensive heart disease [Fatal]
